FAERS Safety Report 9501361 (Version 2)
Quarter: 2013Q3

REPORT INFORMATION
  Report Type: Spontaneous
  Country: US (occurrence: None)
  Receive Date: 20130107
  Receipt Date: 20130724
  Transmission Date: 20140515
  Serious: Yes (Other)
  Sender: FDA-Public Use
  Company Number: PHEH2012US019574

PATIENT
  Age: 40 Year
  Sex: Female
  Weight: 64.9 kg

DRUGS (1)
  1. GILENYA [Suspect]
     Route: 048
     Dates: start: 20120925, end: 20121004

REACTIONS (5)
  - Chest discomfort [None]
  - Fatigue [None]
  - Hypoaesthesia [None]
  - Eye pain [None]
  - Dyspnoea [None]
